FAERS Safety Report 7751315-0 (Version None)
Quarter: 2011Q3

REPORT INFORMATION
  Report Type: 
  Country: None (occurrence: None)
  Receive Date: 20110914
  Receipt Date: 20110912
  Transmission Date: 20111222
  Serious: Yes (Other)
  Sender: FDA-Public Use
  Company Number: FR-CEPHALON-2011003703

PATIENT
  Sex: Female

DRUGS (3)
  1. BACTRIM [Concomitant]
     Dates: start: 20100219
  2. ALFATIL [Concomitant]
     Dates: start: 20100219
  3. MODAFANIL [Suspect]
     Indication: NARCOLEPSY
     Route: 048
     Dates: start: 20110712, end: 20110723

REACTIONS (3)
  - ABNORMAL BEHAVIOUR [None]
  - AGGRESSION [None]
  - DRUG PRESCRIBING ERROR [None]
